FAERS Safety Report 19737749 (Version 1)
Quarter: 2021Q3

REPORT INFORMATION
  Report Type: Spontaneous
  Country: US (occurrence: US)
  Receive Date: 20210820
  Receipt Date: 20210820
  Transmission Date: 20211014
  Serious: No
  Sender: FDA-Public Use
  Company Number: None

PATIENT
  Age: 34 Year
  Sex: Male
  Weight: 101.25 kg

DRUGS (14)
  1. PREGNYL INJECTED SUBQ [Concomitant]
  2. MOMETASONE FUROATE. [Concomitant]
     Active Substance: MOMETASONE FUROATE
  3. VITAMIN D [Concomitant]
     Active Substance: VITAMIN D NOS
  4. AMERGE PRN [Concomitant]
  5. METHYLPHENIDATE HCL ER 27 MG TAB TRIG [Suspect]
     Active Substance: METHYLPHENIDATE HYDROCHLORIDE
     Indication: ATTENTION DEFICIT HYPERACTIVITY DISORDER
     Dosage: ?          QUANTITY:1 TABLET(S);?
     Route: 048
     Dates: start: 20210814
  6. PROPRANOLOL EXTENDED RELEASE DAILY [Concomitant]
  7. CROMOLYN SODIUM ORAL SOLUTION [Concomitant]
     Active Substance: CROMOLYN SODIUM
  8. TOPICAL COMPOUNDED 20% TESTOSTERONE DAILY [Concomitant]
  9. FAMOTIDINE. [Concomitant]
     Active Substance: FAMOTIDINE
  10. MELATONIN [Concomitant]
     Active Substance: MELATONIN
  11. IRON BISGLYCINATE [Concomitant]
  12. VITAMIN B COMPLEX [Concomitant]
     Active Substance: CYANOCOBALAMIN\DEXPANTHENOL\NIACINAMIDE\PYRIDOXINE HYDROCHLORIDE\RIBOFLAVIN 5^-PHOSPHATE SODIUM\THIAMINE HYDROCHLORIDE\VITAMIN B COMPLEX
  13. CONCERTA [Concomitant]
     Active Substance: METHYLPHENIDATE HYDROCHLORIDE
  14. FEXOFENADINE [Concomitant]
     Active Substance: FEXOFENADINE HYDROCHLORIDE

REACTIONS (7)
  - Product substitution issue [None]
  - Therapeutic response changed [None]
  - Product complaint [None]
  - Somnolence [None]
  - Dizziness [None]
  - Drug effect less than expected [None]
  - Product formulation issue [None]

NARRATIVE: CASE EVENT DATE: 20210814
